FAERS Safety Report 11232548 (Version 1)
Quarter: 2015Q3

REPORT INFORMATION
  Report Type: Spontaneous
  Country: US (occurrence: US)
  Receive Date: 20150701
  Receipt Date: 20150701
  Transmission Date: 20151125
  Serious: No
  Sender: FDA-Public Use
  Company Number: US-GLAXOSMITHKLINE-US2015093318

PATIENT
  Sex: Male

DRUGS (3)
  1. COREG [Suspect]
     Active Substance: CARVEDILOL
     Indication: CONGESTIVE CARDIOMYOPATHY
     Dosage: 12.5 MG, BID
     Route: 048
     Dates: start: 1998
  2. CARVEDILOL. [Suspect]
     Active Substance: CARVEDILOL
     Indication: CONGESTIVE CARDIOMYOPATHY
     Route: 048
  3. COREG [Suspect]
     Active Substance: CARVEDILOL
     Dosage: 37 MG, BID

REACTIONS (2)
  - Overdose [Unknown]
  - Therapeutic response decreased [Unknown]
